FAERS Safety Report 5532211-6 (Version None)
Quarter: 2007Q4

REPORT INFORMATION
  Report Type: 
  Country: None (occurrence: None)
  Receive Date: 20071203
  Receipt Date: 20071114
  Transmission Date: 20080405
  Serious: Yes (Other)
  Sender: FDA-Public Use
  Company Number: GB-ASTRAZENECA-2007SE06324

PATIENT
  Age: 66 Year
  Sex: Male
  Weight: 68 kg

DRUGS (1)
  1. AMIAS 4MG TABLETS [Suspect]
     Indication: HYPERTENSION
     Route: 048
     Dates: start: 20071005, end: 20071014

REACTIONS (1)
  - WHEEZING [None]
